FAERS Safety Report 9570006 (Version 1)
Quarter: 2013Q3

REPORT INFORMATION
  Report Type: Spontaneous
  Country: US (occurrence: US)
  Receive Date: 20130930
  Receipt Date: 20130930
  Transmission Date: 20140515
  Serious: No
  Sender: FDA-Public Use
  Company Number: US-AMGEN-USASP2013064999

PATIENT
  Age: 60 Year
  Sex: Male

DRUGS (2)
  1. ENBREL [Suspect]
     Indication: PSORIATIC ARTHROPATHY
     Dosage: 50 MG, QWK
     Route: 065
     Dates: start: 20130906
  2. METHOTREXATE [Concomitant]
     Dosage: 25 MG, QWK, FOR 18 MONTHS

REACTIONS (2)
  - Injection site bruising [Not Recovered/Not Resolved]
  - Scratch [Not Recovered/Not Resolved]
